FAERS Safety Report 8879530 (Version 2)
Quarter: 2012Q4

REPORT INFORMATION
  Report Type: 
  Country: US (occurrence: US)
  Receive Date: 20121101
  Receipt Date: 20121205
  Transmission Date: 20130627
  Serious: Yes (Other)
  Sender: FDA-Public Use
  Company Number: US-ASTELLAS-2012US010495

PATIENT
  Sex: Female

DRUGS (3)
  1. VESICARE [Suspect]
     Indication: URINARY INCONTINENCE
     Dosage: UNK
     Route: 048
     Dates: start: 201209, end: 201209
  2. VESICARE [Suspect]
     Dosage: 5 mg, UID/QD
     Route: 048
     Dates: start: 201210
  3. ESTRACE [Concomitant]
     Indication: PRODUCT USED FOR UNKNOWN INDICATION
     Dosage: UNK
     Route: 065

REACTIONS (5)
  - Sensation of foreign body [Unknown]
  - Dysphagia [Unknown]
  - Infection [Unknown]
  - Treatment noncompliance [Unknown]
  - Dry mouth [Unknown]
